FAERS Safety Report 7682031-1 (Version None)
Quarter: 2011Q3

REPORT INFORMATION
  Report Type: 
  Country: None (occurrence: None)
  Receive Date: 20110815
  Receipt Date: 20110802
  Transmission Date: 20111222
  Serious: Yes (Hospitalization, Other)
  Sender: FDA-Public Use
  Company Number: US-ELI_LILLY_AND_COMPANY-US201108002084

PATIENT
  Sex: Female

DRUGS (3)
  1. FORTEO [Suspect]
     Indication: OSTEOPOROSIS
     Dosage: 20 UG, QD
  2. FORTEO [Suspect]
     Dosage: 20 UG, QD
  3. FOSAMAX [Concomitant]

REACTIONS (8)
  - SKELETAL INJURY [None]
  - DRUG DOSE OMISSION [None]
  - BLOOD PRESSURE DECREASED [None]
  - PAIN [None]
  - FEELING ABNORMAL [None]
  - FATIGUE [None]
  - PELVIC FRACTURE [None]
  - FALL [None]
